FAERS Safety Report 14012819 (Version 1)
Quarter: 2017Q3

REPORT INFORMATION
  Report Type: Report from Study
  Country: US (occurrence: US)
  Receive Date: 20170926
  Receipt Date: 20170926
  Transmission Date: 20171128
  Serious: Yes (Other)
  Sender: FDA-Public Use
  Company Number: US-JAZZ-2016-US-024266

PATIENT
  Age: 78 Year
  Sex: Female

DRUGS (32)
  1. CULTURELLE [Concomitant]
     Active Substance: LACTOBACILLUS RHAMNOSUS
  2. FUROSEMIDE. [Concomitant]
     Active Substance: FUROSEMIDE
  3. VITAMIN D2 [Concomitant]
     Active Substance: ERGOCALCIFEROL
  4. DOXYCYCLINE HYCLATE. [Concomitant]
     Active Substance: DOXYCYCLINE HYCLATE
  5. GARLIC                             /01570501/ [Concomitant]
     Active Substance: GARLIC
  6. XYREM [Suspect]
     Active Substance: SODIUM OXYBATE
     Indication: NARCOLEPSY
     Dosage: 3 G, BID
     Route: 048
     Dates: start: 200705, end: 2007
  7. XYREM [Suspect]
     Active Substance: SODIUM OXYBATE
     Dosage: 3 G, BID
     Route: 048
     Dates: start: 200806
  8. HYDROCHLOROTHIAZIDE. [Concomitant]
     Active Substance: HYDROCHLOROTHIAZIDE
  9. AMMONIUM LACTATE. [Concomitant]
     Active Substance: AMMONIUM LACTATE
  10. DEXTROAMPHETAMINE                  /00016601/ [Concomitant]
     Active Substance: DEXTROAMPHETAMINE
  11. FISH OIL [Concomitant]
     Active Substance: FISH OIL
  12. LANSOPRAZOLE. [Concomitant]
     Active Substance: LANSOPRAZOLE
  13. LYSINE [Concomitant]
     Active Substance: LYSINE
  14. PREVACID [Concomitant]
     Active Substance: LANSOPRAZOLE
  15. PROVIGIL [Concomitant]
     Active Substance: MODAFINIL
  16. CALCIUM CARBONATE. [Concomitant]
     Active Substance: CALCIUM CARBONATE
  17. XYREM [Suspect]
     Active Substance: SODIUM OXYBATE
     Indication: CATAPLEXY
     Dosage: 3 G, QD
     Route: 048
     Dates: start: 200712, end: 2008
  18. DEXEDRINE [Concomitant]
     Active Substance: DEXTROAMPHETAMINE SULFATE
  19. LECITHIN [Concomitant]
     Active Substance: LECITHIN
  20. PAROXETINE HCL [Concomitant]
     Active Substance: PAROXETINE HYDROCHLORIDE
  21. HYDROCODONE BITARTRATE AND ACETAMINOPHEN [Concomitant]
     Active Substance: ACETAMINOPHEN\HYDROCODONE BITARTRATE
  22. GLUCOSAMINE CHONDROITIN            /01430901/ [Concomitant]
  23. MUPIROCIN. [Concomitant]
     Active Substance: MUPIROCIN
  24. NYSTATIN. [Concomitant]
     Active Substance: NYSTATIN
  25. POTASSIUM CL [Concomitant]
     Active Substance: POTASSIUM CHLORIDE
  26. LASIX [Suspect]
     Active Substance: FUROSEMIDE
     Indication: PRODUCT USED FOR UNKNOWN INDICATION
  27. OXYCODONE HYDROCHLORIDE. [Concomitant]
     Active Substance: OXYCODONE HYDROCHLORIDE
  28. SIMVASTATIN. [Concomitant]
     Active Substance: SIMVASTATIN
  29. WARFARIN SODIUM. [Concomitant]
     Active Substance: WARFARIN SODIUM
  30. CALCIUM [Concomitant]
     Active Substance: CALCIUM
  31. METHYLPHENIDATE. [Concomitant]
     Active Substance: METHYLPHENIDATE
  32. OMEGA 3                            /06852001/ [Concomitant]
     Active Substance: OMEGA-3 FATTY ACIDS

REACTIONS (8)
  - Peripheral swelling [Unknown]
  - Thrombosis [Not Recovered/Not Resolved]
  - Gait disturbance [Not Recovered/Not Resolved]
  - Pollakiuria [Unknown]
  - Coagulopathy [Not Recovered/Not Resolved]
  - Pain in extremity [Unknown]
  - Somnolence [Unknown]
  - Drug ineffective [Unknown]

NARRATIVE: CASE EVENT DATE: 2014
